FAERS Safety Report 8339298-6 (Version None)
Quarter: 2012Q2

REPORT INFORMATION
  Report Type: 
  Country: None (occurrence: None)
  Receive Date: 20120507
  Receipt Date: 20120424
  Transmission Date: 20120825
  Serious: Yes (Hospitalization)
  Sender: FDA-Public Use
  Company Number: US-JNJFOC-20120311288

PATIENT
  Sex: Male
  Weight: 29.7 kg

DRUGS (11)
  1. PREDNISONE TAB [Concomitant]
  2. REMICADE [Suspect]
     Indication: INFLAMMATORY BOWEL DISEASE
     Route: 042
     Dates: start: 20050921
  3. LOPERAMIDE [Concomitant]
  4. HUMIRA [Concomitant]
     Dates: start: 20080319
  5. OXYCODONE/ACETAMINOPHEN [Concomitant]
  6. MESALAMINE [Concomitant]
     Route: 048
  7. AZATHIOPRINE [Concomitant]
  8. ANTIBIOTICS [Concomitant]
     Indication: INFLAMMATORY BOWEL DISEASE
  9. IRON [Concomitant]
  10. OMEPRAZOLE [Concomitant]
  11. FAMOTIDINE [Concomitant]

REACTIONS (1)
  - CROHN'S DISEASE [None]
